FAERS Safety Report 6907697-2 (Version None)
Quarter: 2010Q3

REPORT INFORMATION
  Report Type: 
  Country: None (occurrence: None)
  Receive Date: 20100805
  Receipt Date: 20100727
  Transmission Date: 20110219
  Serious: Yes (Hospitalization, Other)
  Sender: FDA-Public Use
  Company Number: CN-ASTRAZENECA-2010SE33903

PATIENT
  Age: 846 Month
  Sex: Male
  Weight: 65 kg

DRUGS (1)
  1. IRESSA [Suspect]
     Indication: NON-SMALL CELL LUNG CANCER
     Route: 048
     Dates: start: 20100716, end: 20100719

REACTIONS (3)
  - DYSPNOEA [None]
  - HAEMORRHAGE SUBCUTANEOUS [None]
  - INTERSTITIAL LUNG DISEASE [None]
